FAERS Safety Report 6376104-3 (Version None)
Quarter: 2009Q3

REPORT INFORMATION
  Report Type: 
  Country: None (occurrence: None)
  Receive Date: 20090921
  Receipt Date: 20090909
  Transmission Date: 20100115
  Serious: Yes (Hospitalization)
  Sender: FDA-Public Use
  Company Number: 310003L09JPN

PATIENT
  Age: 25 Year
  Sex: Female

DRUGS (2)
  1. FOLLITROPIN ALPHA [Suspect]
     Indication: INFERTILITY
  2. CHORIOGONADROTOPIN ALFA [Suspect]
     Indication: INFERTILITY

REACTIONS (8)
  - ASCITES [None]
  - DRUG EXPOSURE DURING PREGNANCY [None]
  - GENITAL HAEMORRHAGE [None]
  - MULTIPLE PREGNANCY [None]
  - OVARIAN HYPERSTIMULATION SYNDROME [None]
  - OVARIAN NECROSIS [None]
  - OVARIAN TORSION [None]
  - POLYCYSTIC OVARIES [None]
